FAERS Safety Report 8455892-6 (Version None)
Quarter: 2012Q2

REPORT INFORMATION
  Report Type: 
  Country: None (occurrence: None)
  Receive Date: 20120621
  Receipt Date: 20120612
  Transmission Date: 20120825
  Serious: Yes (Death, Disabling, Other)
  Sender: FDA-Public Use
  Company Number: JP-ROCHE-1013079

PATIENT
  Sex: Female

DRUGS (21)
  1. ACTEMRA [Suspect]
     Route: 041
     Dates: start: 20111019, end: 20111125
  2. PREDNISOLONE [Concomitant]
     Indication: RHEUMATOID ARTHRITIS
     Route: 048
     Dates: start: 20080701, end: 20090716
  3. RISEDRONATE SODIUM [Concomitant]
     Indication: PROPHYLAXIS
     Route: 048
     Dates: start: 20120203, end: 20120426
  4. ACTEMRA [Suspect]
     Indication: RHEUMATOID ARTHRITIS
     Route: 041
     Dates: start: 20081023, end: 20110407
  5. PREDNISOLONE [Concomitant]
     Route: 048
     Dates: start: 20090717, end: 20110310
  6. FOSAMAX [Concomitant]
     Indication: PROPHYLAXIS
     Route: 048
     Dates: start: 20061208, end: 20110407
  7. LYRICA [Concomitant]
     Route: 048
     Dates: start: 20120322, end: 20120426
  8. ACTEMRA [Suspect]
     Route: 041
     Dates: start: 20110519, end: 20110715
  9. ACTEMRA [Suspect]
     Route: 041
     Dates: start: 20110829, end: 20110829
  10. MEXITIL [Concomitant]
     Route: 048
     Dates: start: 20080409, end: 20090716
  11. COTRIM [Concomitant]
     Route: 048
     Dates: end: 20120426
  12. ISONIAZID [Concomitant]
     Indication: ANTIBIOTIC PROPHYLAXIS
     Route: 048
     Dates: start: 20050607, end: 20120426
  13. CEFAZOLIN SODIUM [Concomitant]
     Route: 048
     Dates: start: 20061208
  14. ACTEMRA [Suspect]
     Route: 041
     Dates: start: 20120106, end: 20120330
  15. AZATHIOPRINE [Suspect]
     Route: 048
     Dates: end: 20110310
  16. VITAMIN B12 [Concomitant]
     Route: 048
     Dates: start: 20090324, end: 20120426
  17. AZATHIOPRINE [Suspect]
     Indication: RHEUMATOID ARTHRITIS
     Route: 048
     Dates: start: 20050607
  18. LANSOPRAZOLE [Concomitant]
     Indication: PROPHYLAXIS
     Route: 048
     Dates: start: 20030109, end: 20120426
  19. MIYA BM [Concomitant]
     Route: 048
     Dates: end: 20120426
  20. MOBIC [Concomitant]
     Indication: RHEUMATOID ARTHRITIS
     Route: 048
     Dates: start: 20020806, end: 20120426
  21. PREDNISOLONE [Concomitant]
     Route: 048
     Dates: start: 20120322, end: 20120426

REACTIONS (3)
  - MALIGNANT ASCITES [None]
  - HAEMOTHORAX [None]
  - LIP AND/OR ORAL CAVITY CANCER [None]
